FAERS Safety Report 23484270 (Version 1)
Quarter: 2024Q1

REPORT INFORMATION
  Report Type: Spontaneous
  Country: US (occurrence: US)
  Receive Date: 20240206
  Receipt Date: 20240206
  Transmission Date: 20240410
  Serious: No
  Sender: FDA-Public Use
  Company Number: US-STRIDES ARCOLAB LIMITED-2023SP018065

PATIENT
  Age: 60 Year
  Sex: Female

DRUGS (1)
  1. OSELTAMIVIR PHOSPHATE [Suspect]
     Active Substance: OSELTAMIVIR PHOSPHATE
     Indication: Influenza
     Dosage: UNK, CAPSULE
     Route: 048
     Dates: start: 20231126

REACTIONS (3)
  - Nausea [Unknown]
  - Fatigue [Unknown]
  - Dizziness [Unknown]
